FAERS Safety Report 7314503-3 (Version None)
Quarter: 2011Q1

REPORT INFORMATION
  Report Type: 
  Country: None (occurrence: None)
  Receive Date: 20110225
  Receipt Date: 20100927
  Transmission Date: 20110831
  Serious: No
  Sender: FDA-Public Use
  Company Number: US-MYLANLABS-2010S1016957

PATIENT
  Age: 49 Year
  Sex: Female
  Weight: 54.43 kg

DRUGS (1)
  1. AMNESTEEM [Suspect]
     Indication: ACNE
     Dates: start: 20100719, end: 20100813

REACTIONS (1)
  - ALOPECIA [None]
